FAERS Safety Report 8181450-7 (Version None)
Quarter: 2012Q1

REPORT INFORMATION
  Report Type: 
  Country: None (occurrence: None)
  Receive Date: 20120302
  Receipt Date: 20120222
  Transmission Date: 20120608
  Serious: Yes (Hospitalization)
  Sender: FDA-Public Use
  Company Number: BR-ASTRAZENECA-2012SE12272

PATIENT
  Age: 54 Year
  Sex: Female

DRUGS (7)
  1. MACRODANTINA [Concomitant]
  2. INDAPAMIDE [Concomitant]
  3. ATACAND [Suspect]
     Indication: HYPERTENSION
     Route: 048
     Dates: start: 20060101
  4. MYFORTIC [Concomitant]
  5. SIMVASTATIN [Concomitant]
  6. ENDOFOLIN [Concomitant]
  7. RAPAMUNE [Concomitant]

REACTIONS (5)
  - CONGENITAL CYSTIC KIDNEY DISEASE [None]
  - DIARRHOEA [None]
  - INFLUENZA [None]
  - VOMITING [None]
  - INAPPROPRIATE SCHEDULE OF DRUG ADMINISTRATION [None]
